FAERS Safety Report 6328778-0 (Version None)
Quarter: 2009Q3

REPORT INFORMATION
  Report Type: 
  Country: None (occurrence: None)
  Receive Date: 20090826
  Receipt Date: 20090818
  Transmission Date: 20100115
  Serious: Yes (Disabling)
  Sender: FDA-Public Use
  Company Number: JP-ASTRAZENECA-2009SE08714

PATIENT
  Age: 47 Year
  Sex: Female

DRUGS (2)
  1. NOLVADEX [Suspect]
     Indication: BREAST CANCER
     Route: 048
  2. ZOLADEX [Suspect]
     Indication: BREAST CANCER
     Route: 058

REACTIONS (1)
  - ACUTE MYELOID LEUKAEMIA [None]
